FAERS Safety Report 5409980-9 (Version None)
Quarter: 2007Q3

REPORT INFORMATION
  Report Type: 
  Country: None (occurrence: None)
  Receive Date: 20070809
  Receipt Date: 20070730
  Transmission Date: 20080115
  Serious: Yes (Other)
  Sender: FDA-Public Use
  Company Number: US-PFIZER INC-2007063790

PATIENT
  Sex: Female
  Weight: 45.4 kg

DRUGS (18)
  1. LIPITOR [Suspect]
     Indication: BLOOD CHOLESTEROL
     Dates: start: 20030101, end: 20070101
  2. CITALOPRAM HYDROBROMIDE [Concomitant]
  3. OMEPRAZOLE [Concomitant]
  4. GABAPENTIN [Concomitant]
     Indication: NEURALGIA
  5. HYDROXYZINE [Concomitant]
     Indication: PHARYNGOLARYNGEAL PAIN
  6. LOTREL [Concomitant]
     Indication: HYPERTENSION
  7. ZYLOPRIM [Concomitant]
  8. TIZANIDINE HCL [Concomitant]
  9. ETODOLAC [Concomitant]
  10. ZOLPIDEM TARTRATE [Concomitant]
  11. CRESTOR [Concomitant]
  12. XOPENEX [Concomitant]
     Indication: RESPIRATORY THERAPY
  13. ASPIRIN [Concomitant]
  14. SPIRIVA [Concomitant]
  15. ADVAIR DISKUS 100/50 [Concomitant]
     Indication: RESPIRATORY THERAPY
  16. CILOSTAZOL [Concomitant]
  17. DARVOCET [Concomitant]
     Indication: NEURALGIA
  18. OXYGEN [Concomitant]

REACTIONS (3)
  - ANEURYSM [None]
  - MUSCLE ATROPHY [None]
  - PAIN [None]
